FAERS Safety Report 5939500-1 (Version None)
Quarter: 2008Q4

REPORT INFORMATION
  Report Type: 
  Country: None (occurrence: None)
  Receive Date: 20081030
  Receipt Date: 20080924
  Transmission Date: 20090506
  Serious: Yes (Death, Other)
  Sender: FDA-Public Use
  Company Number: 2008PL000160

PATIENT
  Age: 49 Year
  Sex: Male

DRUGS (3)
  1. IMURAN [Suspect]
     Indication: IMMUNOSUPPRESSION
  2. PREDNISONE TAB [Concomitant]
  3. TAROLIMUS [Concomitant]

REACTIONS (4)
  - HUMAN HERPESVIRUS 8 INFECTION [None]
  - KAPOSI'S SARCOMA [None]
  - PERFORMANCE STATUS DECREASED [None]
  - TRANSMISSION OF AN INFECTIOUS AGENT VIA A MEDICINAL PRODUCT [None]
